FAERS Safety Report 5824272-1 (Version None)
Quarter: 2008Q3

REPORT INFORMATION
  Report Type: 
  Country: None (occurrence: None)
  Receive Date: 20080722
  Receipt Date: 20080707
  Transmission Date: 20090109
  Serious: Yes (Other)
  Sender: FDA-Public Use
  Company Number: 030882

PATIENT
  Age: 75 Year
  Sex: Male

DRUGS (9)
  1. AMIODARONE HCL [Suspect]
     Indication: VENTRICULAR TACHYCARDIA
     Dosage: 400 MG,
  2. CLOZAPINE [Suspect]
     Indication: SCHIZOPHRENIA
     Dosage: 300 MG,
  3. IRON(IRON) [Suspect]
  4. DIVALPROEX SODIUM [Concomitant]
  5. IPRATROPIUM BROMIDE [Concomitant]
  6. ALBUTEROL [Concomitant]
  7. METOPROLOL TARTRATE [Concomitant]
  8. PANTOPRAZOLE SODIUM [Concomitant]
  9. MAGNESIUM GLUCONATE (MAGNESIUM GLUCONATE) [Concomitant]

REACTIONS (14)
  - BLOOD PRESSURE SYSTOLIC DECREASED [None]
  - CARDIO-RESPIRATORY ARREST [None]
  - CHILLS [None]
  - COUGH [None]
  - DRUG INTERACTION [None]
  - DRUG LEVEL INCREASED [None]
  - DRUG TOXICITY [None]
  - DYSPNOEA [None]
  - HYPOXIA [None]
  - PERICARDIAL EFFUSION [None]
  - PERICARDIAL HAEMORRHAGE [None]
  - SCHIZOPHRENIA, DISORGANISED TYPE [None]
  - TANGENTIALITY [None]
  - VENTRICULAR TACHYCARDIA [None]
